FAERS Safety Report 7509094-8 (Version None)
Quarter: 2011Q2

REPORT INFORMATION
  Report Type: 
  Country: None (occurrence: None)
  Receive Date: 20110527
  Receipt Date: 20110523
  Transmission Date: 20111010
  Serious: Yes (Death, Other)
  Sender: FDA-Public Use
  Company Number: AU-PFIZER INC-2011113004

PATIENT
  Age: 33 Year
  Sex: Male

DRUGS (4)
  1. CODEINE [Interacting]
     Dosage: UNK
  2. METHYLENEDIOXYMETHAMPHETAMINE [Interacting]
     Dosage: UNK
  3. VENLAFAXINE HCL [Suspect]
     Dosage: UNK
  4. IBUPROFEN [Interacting]
     Dosage: UNK

REACTIONS (4)
  - MULTIPLE INJURIES [None]
  - TOXICITY TO VARIOUS AGENTS [None]
  - SHOCK HAEMORRHAGIC [None]
  - DRUG INTERACTION [None]
